FAERS Safety Report 22832249 (Version 3)
Quarter: 2023Q4

REPORT INFORMATION
  Report Type: Report from Study
  Country: US (occurrence: US)
  Receive Date: 20230817
  Receipt Date: 20231005
  Transmission Date: 20240110
  Serious: Yes (Other)
  Sender: FDA-Public Use
  Company Number: US-ARGENX-2023-ARGX-US002707

PATIENT

DRUGS (1)
  1. VYVGART [Suspect]
     Active Substance: EFGARTIGIMOD ALFA-FCAB
     Indication: Myasthenia gravis
     Dosage: 10 MG/KG, 1 DOSING CYCLE
     Route: 042
     Dates: start: 20230428, end: 20230519

REACTIONS (3)
  - Cataract [Unknown]
  - Muscular weakness [Unknown]
  - Upper respiratory tract infection [Unknown]
